FAERS Safety Report 5628562-7 (Version None)
Quarter: 2008Q1

REPORT INFORMATION
  Report Type: 
  Country: None (occurrence: None)
  Receive Date: 20080215
  Receipt Date: 20080204
  Transmission Date: 20080703
  Serious: Yes (Hospitalization, Disabling, Other)
  Sender: FDA-Public Use
  Company Number: JP-MERCK-0801USA03028

PATIENT
  Age: 1 Year
  Sex: Male

DRUGS (8)
  1. SINGULAIR [Suspect]
     Indication: ASTHMA
     Route: 048
     Dates: start: 20071216, end: 20071228
  2. MUCODYNE [Concomitant]
     Indication: ASTHMA
     Route: 048
     Dates: start: 20071216, end: 20071228
  3. MUCODYNE [Concomitant]
     Route: 048
     Dates: start: 20071209, end: 20071216
  4. PROCATEROL HYDROCHLORIDE [Concomitant]
     Route: 048
     Dates: start: 20071216, end: 20071228
  5. TIPEPIDINE HIBENZATE [Concomitant]
     Route: 048
     Dates: start: 20071209, end: 20071216
  6. CYPROHEPTADINE HYDROCHLORIDE [Concomitant]
     Route: 048
     Dates: start: 20071209, end: 20071216
  7. CLOSTRIDIUM BUTYRICUM [Concomitant]
     Route: 048
     Dates: start: 20071209, end: 20071212
  8. LOPERAMIDE HYDROCHLORIDE [Concomitant]
     Route: 048
     Dates: start: 20071209, end: 20071212

REACTIONS (2)
  - GASTROENTERITIS [None]
  - IDIOPATHIC THROMBOCYTOPENIC PURPURA [None]
